FAERS Safety Report 5351013-7 (Version None)
Quarter: 2007Q2

REPORT INFORMATION
  Report Type: 
  Country: None (occurrence: None)
  Receive Date: 20070608
  Receipt Date: 20070531
  Transmission Date: 20071010
  Serious: Yes (Other)
  Sender: FDA-Public Use
  Company Number: FR-ELI_LILLY_AND_COMPANY-FR200706000328

PATIENT
  Age: 30 Year
  Sex: Male

DRUGS (1)
  1. ZYPREXA [Suspect]
     Indication: MANIA
     Dosage: 5 MG, DAILY (1/D)
     Route: 048
     Dates: start: 20070523

REACTIONS (3)
  - OEDEMA [None]
  - POST PROCEDURAL OEDEMA [None]
  - WEIGHT INCREASED [None]
